FAERS Safety Report 7385069-7 (Version None)
Quarter: 2011Q1

REPORT INFORMATION
  Report Type: 
  Country: None (occurrence: None)
  Receive Date: 20110330
  Receipt Date: 20110303
  Transmission Date: 20110831
  Serious: No
  Sender: FDA-Public Use
  Company Number: US-B.I. PHARMACEUTICALS,INC./RIDGEFIELD-2011-BP-06324BP

PATIENT
  Sex: Male

DRUGS (15)
  1. AREDS [Concomitant]
     Indication: MACULAR DEGENERATION
  2. ASPIRIN [Concomitant]
     Indication: PROPHYLAXIS
  3. ALENDRONATE [Concomitant]
     Indication: OSTEOPOROSIS
  4. VICODIN [Concomitant]
     Indication: RESTLESS LEGS SYNDROME
  5. PREVACID [Concomitant]
     Indication: GASTROOESOPHAGEAL REFLUX DISEASE
  6. CALCIUM [Concomitant]
     Indication: OSTEOPOROSIS
  7. COUMADIN [Concomitant]
     Indication: ATRIAL FIBRILLATION
     Dates: start: 20110201
  8. MULTIVITAMIN [Concomitant]
     Indication: PROPHYLAXIS
  9. IRON [Concomitant]
     Indication: PROPHYLAXIS
  10. VICODIN [Concomitant]
     Indication: PAIN
  11. TOPROL-XL [Concomitant]
     Indication: HYPERTENSION
  12. AMIODARONE HCL [Concomitant]
     Indication: ATRIAL FIBRILLATION
  13. UROXATRAL [Concomitant]
     Indication: PROSTATIC DISORDER
  14. FISH OIL [Concomitant]
     Indication: PROPHYLAXIS
  15. PRADAXA [Suspect]
     Indication: ATRIAL FIBRILLATION
     Dosage: 150 MG
     Route: 048
     Dates: start: 20110201, end: 20110201

REACTIONS (4)
  - DIZZINESS [None]
  - THIRST [None]
  - GROIN PAIN [None]
  - PAIN IN EXTREMITY [None]
